FAERS Safety Report 24310278 (Version 1)
Quarter: 2024Q3

REPORT INFORMATION
  Report Type: Report from Study
  Country: US (occurrence: US)
  Receive Date: 20240912
  Receipt Date: 20240912
  Transmission Date: 20241017
  Serious: Yes (Death, Other)
  Sender: ACADIA PHARMACEUTICALS
  Company Number: US-ACADIA PHARMACEUTICALS INC.-ACA-2024-PIM-004911

PATIENT
  Age: 73 Year
  Sex: Male

DRUGS (13)
  1. NUPLAZID [Suspect]
     Active Substance: PIMAVANSERIN TARTRATE
     Indication: Parkinson^s disease
     Dosage: 34 MILLIGRAM, QD
     Route: 048
  2. TYLENOL [Concomitant]
     Active Substance: ACETAMINOPHEN
  3. LORATADINE [Concomitant]
     Active Substance: LORATADINE
  4. SILDENAFIL [Concomitant]
     Active Substance: SILDENAFIL
  5. ASPIRIN [Concomitant]
     Active Substance: ASPIRIN
  6. VITAMIN B6 [Concomitant]
     Active Substance: PYRIDOXINE HYDROCHLORIDE
  7. FOLIC ACID [Concomitant]
     Active Substance: FOLIC ACID
  8. ROSUVASTATIN [Concomitant]
     Active Substance: ROSUVASTATIN\ROSUVASTATIN CALCIUM
  9. GLUCOSAMINE [Concomitant]
     Active Substance: GLUCOSAMINE
  10. MAGNESIUM [Concomitant]
     Active Substance: MAGNESIUM
  11. PEPCID [Concomitant]
     Active Substance: FAMOTIDINE
  12. COLACE [Concomitant]
     Active Substance: DOCUSATE SODIUM
  13. VITAMIN D3 [Concomitant]
     Active Substance: CHOLECALCIFEROL

REACTIONS (1)
  - Death [Fatal]

NARRATIVE: CASE EVENT DATE: 20240815
